FAERS Safety Report 8944541 (Version 1)
Quarter: 2012Q4

REPORT INFORMATION
  Report Type: 
  Country: US (occurrence: US)
  Receive Date: 20121204
  Receipt Date: 20121204
  Transmission Date: 20130627
  Serious: No
  Sender: FDA-Public Use
  Company Number: US-AMGEN-USASP2012062796

PATIENT
  Age: 62 Year
  Sex: Male
  Weight: 99.77 kg

DRUGS (3)
  1. ENBREL [Suspect]
     Indication: PSORIASIS
     Dosage: 50 mg, qwk
     Route: 058
     Dates: start: 20120618
  2. RIBAVIRIN [Suspect]
     Indication: HEPATITIS C
     Dosage: UNK
     Dates: start: 2012, end: 201210
  3. INTERFERON ALFA [Concomitant]
     Indication: HEPATITIS C
     Dosage: UNK
     Dates: start: 2012

REACTIONS (4)
  - Erythema [Not Recovered/Not Resolved]
  - Nodule [Not Recovered/Not Resolved]
  - Rash [Unknown]
  - Injection site rash [Not Recovered/Not Resolved]
